FAERS Safety Report 16873811 (Version 2)
Quarter: 2019Q4

REPORT INFORMATION
  Report Type: Report from Study
  Country: IT (occurrence: IT)
  Receive Date: 20191001
  Receipt Date: 20191024
  Transmission Date: 20200122
  Serious: Yes (Hospitalization)
  Sender: FDA-Public Use
  Company Number: IT-MYLANLABS-2019M1091307

PATIENT
  Age: 52 Year
  Sex: Male

DRUGS (2)
  1. BRUFEN 600 MG COMPRESSE RIVESTITE [Suspect]
     Active Substance: IBUPROFEN
     Indication: GOUT
     Dosage: 600 MILLIGRAM, QD
     Route: 048
     Dates: start: 20190508, end: 20190511
  2. ZYLORIC [Suspect]
     Active Substance: ALLOPURINOL
     Indication: GOUT
     Dosage: 300 MILLIGRAM, QD
     Route: 048
     Dates: start: 20190403, end: 20190510

REACTIONS (2)
  - Rash [Recovering/Resolving]
  - Mucosal inflammation [Recovering/Resolving]

NARRATIVE: CASE EVENT DATE: 20190513
